FAERS Safety Report 18992319 (Version 1)
Quarter: 2021Q1

REPORT INFORMATION
  Report Type: Spontaneous
  Country: US (occurrence: US)
  Receive Date: 20210309
  Receipt Date: 20210309
  Transmission Date: 20210420
  Serious: Yes (Death)
  Sender: FDA-Public Use
  Company Number: None

PATIENT
  Sex: Male

DRUGS (25)
  1. FERROUS SULFATE. [Concomitant]
     Active Substance: FERROUS SULFATE
  2. LEUCOVORIN. [Concomitant]
     Active Substance: LEUCOVORIN
  3. PROCHLORPERAZINE. [Concomitant]
     Active Substance: PROCHLORPERAZINE
  4. ALLOPURINOL. [Concomitant]
     Active Substance: ALLOPURINOL
  5. ALOXI [Concomitant]
     Active Substance: PALONOSETRON HYDROCHLORIDE
  6. ETOPOSIDE. [Concomitant]
     Active Substance: ETOPOSIDE
  7. TRAZODONE [Concomitant]
     Active Substance: TRAZODONE HYDROCHLORIDE
  8. CARBOPLATIN. [Concomitant]
     Active Substance: CARBOPLATIN
  9. COLCHICINE. [Concomitant]
     Active Substance: COLCHICINE
  10. HYDROXYCHLOROQUINE [Concomitant]
     Active Substance: HYDROXYCHLOROQUINE
  11. VITAMIN C [Concomitant]
     Active Substance: ASCORBIC ACID
  12. CILOSTAZOL. [Concomitant]
     Active Substance: CILOSTAZOL
  13. METHOTREXATE. [Concomitant]
     Active Substance: METHOTREXATE
  14. NEULASTA [Concomitant]
     Active Substance: PEGFILGRASTIM
  15. NYSTATIN. [Concomitant]
     Active Substance: NYSTATIN
  16. SIMVASTATIN. [Concomitant]
     Active Substance: SIMVASTATIN
  17. VITAMIN D [Concomitant]
     Active Substance: VITAMIN D NOS
  18. AMLODIPINE [Concomitant]
     Active Substance: AMLODIPINE BESYLATE
  19. FOLIC ACID. [Concomitant]
     Active Substance: FOLIC ACID
  20. OXYCODONE [Concomitant]
     Active Substance: OXYCODONE
  21. TECENTRIQ [Suspect]
     Active Substance: ATEZOLIZUMAB
     Indication: LUNG NEOPLASM MALIGNANT
     Dosage: ?          OTHER FREQUENCY:Q3WEEKS;?
     Route: 042
     Dates: start: 20210120
  22. ASPIRIN. [Concomitant]
     Active Substance: ASPIRIN
  23. OMEPRAZOLE. [Concomitant]
     Active Substance: OMEPRAZOLE
  24. TRIAMCINOLONE [Concomitant]
     Active Substance: TRIAMCINOLONE
  25. NAPROXEN. [Concomitant]
     Active Substance: NAPROXEN

REACTIONS (1)
  - Death [None]
